FAERS Safety Report 24368049 (Version 1)
Quarter: 2024Q3

REPORT INFORMATION
  Report Type: Spontaneous
  Country: CN (occurrence: CN)
  Receive Date: 20240926
  Receipt Date: 20240926
  Transmission Date: 20241017
  Serious: Yes (Hospitalization, Other)
  Sender: SANOFI AVENTIS
  Company Number: CN-SA-2024SA275921

PATIENT
  Age: 82 Year
  Sex: Male

DRUGS (1)
  1. DUPILUMAB [Suspect]
     Active Substance: DUPILUMAB
     Indication: Dermatitis atopic
     Dosage: UNK

REACTIONS (6)
  - Dermatitis exfoliative generalised [Recovering/Resolving]
  - Erythema [Recovering/Resolving]
  - Skin exfoliation [Recovering/Resolving]
  - Pruritus [Recovering/Resolving]
  - Skin hyperplasia [Recovering/Resolving]
  - Lymphocytic infiltration [Recovering/Resolving]
